FAERS Safety Report 7875211-3 (Version None)
Quarter: 2011Q4

REPORT INFORMATION
  Report Type: 
  Country: None (occurrence: None)
  Receive Date: 20111031
  Receipt Date: 20111021
  Transmission Date: 20120403
  Serious: Yes (Hospitalization)
  Sender: FDA-Public Use
  Company Number: FR-ASTELLAS-2011EU002632

PATIENT
  Sex: Male
  Weight: 95 kg

DRUGS (12)
  1. PROGRAF [Suspect]
     Dosage: 2.5 MG, BID
     Route: 065
  2. PREDNISOLONE [Concomitant]
     Dosage: 5 MG, UNKNOWN/D
     Route: 048
     Dates: start: 20031125
  3. PROGRAF [Suspect]
     Indication: RENAL TRANSPLANT
     Dosage: 1 DF, TID
     Route: 048
     Dates: start: 20040101
  4. BISOPROLOL FUMARATE [Concomitant]
     Indication: HYPERTENSION
     Dosage: 5 MG, UNKNOWN/D
     Route: 048
     Dates: start: 20100105
  5. MONICOR [Concomitant]
     Indication: CARDIAC FAILURE
     Dosage: 1 DF, UNKNOWN/D
     Route: 048
     Dates: start: 20090914, end: 20110614
  6. FUROSEMIDE [Concomitant]
     Indication: DIURETIC THERAPY
     Dosage: 1 DF, UNKNOWN/D
     Route: 048
     Dates: start: 20040108
  7. PROGRAF [Suspect]
     Dosage: 3 MG, UNKNOWN/D
     Route: 048
     Dates: start: 20040101
  8. PROGRAF [Suspect]
     Dosage: 1 DF, TID
     Route: 048
     Dates: start: 20040101
  9. MYCOPHENOLATE MOFETIL (CELLCEPT) [Suspect]
     Dosage: 750 MG, BID
     Route: 048
     Dates: start: 20090201
  10. ZOFENIL [Concomitant]
     Indication: HYPERTENSION
     Dosage: 1 DF, UNKNOWN/D
     Route: 048
     Dates: start: 20061027
  11. AMIODARONE HCL [Concomitant]
     Indication: CARDIAC FAILURE
     Dosage: UNK
     Route: 048
     Dates: start: 20040115
  12. ALLOPURINOL [Concomitant]
     Indication: BLOOD URIC ACID
     Dosage: 1 DF, UNKNOWN/D
     Route: 048
     Dates: start: 20090210, end: 20110614

REACTIONS (2)
  - INTENTIONAL DRUG MISUSE [None]
  - GOUT [None]
